FAERS Safety Report 6655024-0 (Version None)
Quarter: 2010Q1

REPORT INFORMATION
  Report Type: 
  Country: None (occurrence: None)
  Receive Date: 20100329
  Receipt Date: 20100312
  Transmission Date: 20100710
  Serious: No
  Sender: FDA-Public Use
  Company Number: US-BAYER-201016567NA

PATIENT
  Sex: Female

DRUGS (2)
  1. MIRENA [Suspect]
     Indication: DRUG USE FOR UNKNOWN INDICATION
     Dosage: FREQUENCY CONTINUOUS
     Route: 015
  2. HCG SHOT [Concomitant]
     Indication: WEIGHT DECREASED
     Route: 065

REACTIONS (1)
  - PREGNANCY WITH CONTRACEPTIVE DEVICE [None]
